FAERS Safety Report 22253942 (Version 2)
Quarter: 2023Q4

REPORT INFORMATION
  Report Type: Other
  Country: KR (occurrence: None)
  Receive Date: 20230426
  Receipt Date: 20231102
  Transmission Date: 20240109
  Serious: Yes (Death)
  Sender: FDA-Public Use
  Company Number: KR-ROCHE-3169980

PATIENT
  Age: 68 Year
  Sex: Male

DRUGS (6)
  1. ATEZOLIZUMAB [Suspect]
     Active Substance: ATEZOLIZUMAB
     Indication: Small cell lung cancer
     Dosage: MOST RECENT DOSE: 20/JUL/2022, 03/SEP/2022
     Route: 065
     Dates: start: 20220628
  2. GRASIN [Concomitant]
     Dosage: DOSE: 300/ MCC
     Dates: start: 20220802, end: 20220802
  3. ONDANSETRON [Concomitant]
     Active Substance: ONDANSETRON
     Dates: start: 20220628, end: 20230203
  4. NALOXONE HYDROCHLORIDE\OXYCODONE HYDROCHLORIDE [Concomitant]
     Active Substance: NALOXONE HYDROCHLORIDE\OXYCODONE HYDROCHLORIDE
     Dates: start: 20220802, end: 20230203
  5. MOSAPRIDE CITRATE [Concomitant]
     Active Substance: MOSAPRIDE CITRATE
     Dates: start: 20221220
  6. OXYCODONE HYDROCHLORIDE [Concomitant]
     Active Substance: OXYCODONE HYDROCHLORIDE
     Dates: start: 20221221

REACTIONS (2)
  - Ileus paralytic [Fatal]
  - Asthenia [Recovering/Resolving]

NARRATIVE: CASE EVENT DATE: 20220802
